FAERS Safety Report 12554693 (Version 2)
Quarter: 2016Q3

REPORT INFORMATION
  Report Type: Spontaneous
  Country: US (occurrence: US)
  Receive Date: 20160713
  Receipt Date: 20160908
  Transmission Date: 20161109
  Serious: Yes (Hospitalization)
  Sender: FDA-Public Use
  Company Number: US-RELYPSA-RLY2016001315

PATIENT
  Age: 67 Year
  Sex: Male

DRUGS (15)
  1. COLACE [Concomitant]
     Active Substance: DOCUSATE SODIUM
  2. LOSARTAN POTASSIUM. [Concomitant]
     Active Substance: LOSARTAN POTASSIUM
  3. MEVACOR [Concomitant]
     Active Substance: LOVASTATIN
  4. HUMULIN NOS [Concomitant]
     Active Substance: INSULIN HUMAN
  5. ANUSOL                             /00117301/ [Concomitant]
     Active Substance: BALSAM PERU\BISMUTH HYDROXIDE\BISMUTH SUBGALLATE\BORIC ACID\ZINC OXIDE
  6. INSULIN [Concomitant]
     Active Substance: INSULIN NOS
  7. ASPIRIN 81 [Concomitant]
     Active Substance: ASPIRIN
  8. AMLODIPINE BESYLATE. [Concomitant]
     Active Substance: AMLODIPINE BESYLATE
  9. VELTASSA [Suspect]
     Active Substance: PATIROMER
     Indication: HYPERKALAEMIA
     Dosage: 16.8 G, QD
     Route: 048
     Dates: start: 20160302, end: 201607
  10. NEPHRO-VITE                        /01801401/ [Concomitant]
  11. VELTASSA [Suspect]
     Active Substance: PATIROMER
     Dosage: 16.8 G, QD
     Route: 065
     Dates: start: 20160802
  12. RENVELA [Concomitant]
     Active Substance: SEVELAMER CARBONATE
  13. CARVEDILOL. [Concomitant]
     Active Substance: CARVEDILOL
  14. KIONEX [Concomitant]
     Active Substance: SODIUM POLYSTYRENE SULFONATE
  15. CLONIDINE HCL [Concomitant]
     Active Substance: CLONIDINE HYDROCHLORIDE

REACTIONS (2)
  - Cardiac pacemaker insertion [Recovered/Resolved]
  - Arteriovenous fistula operation [Recovered/Resolved]

NARRATIVE: CASE EVENT DATE: 201607
